FAERS Safety Report 7127923-7 (Version None)
Quarter: 2010Q4

REPORT INFORMATION
  Report Type: 
  Country: None (occurrence: None)
  Receive Date: 20101130
  Receipt Date: 20101116
  Transmission Date: 20110411
  Serious: Yes (Other)
  Sender: FDA-Public Use
  Company Number: DE-RANBAXY-2010R1-39675

PATIENT
  Age: 45 Year
  Sex: Female

DRUGS (2)
  1. METRONIDAZOLE [Suspect]
     Indication: PERIODONTITIS
     Dosage: 400 MG, TID
     Route: 048
  2. AMOXICILLIN [Suspect]
     Indication: PERIODONTITIS
     Dosage: 500 MG, TID
     Route: 048

REACTIONS (4)
  - ERYTHEMA [None]
  - PRURITUS [None]
  - RASH PUSTULAR [None]
  - SWELLING [None]
